FAERS Safety Report 16026032 (Version 2)
Quarter: 2025Q4

REPORT INFORMATION
  Report Type: Spontaneous
  Country: EU (occurrence: EU)
  Receive Date: 20190302
  Receipt Date: 20251223
  Transmission Date: 20260117
  Serious: Yes (Death, Life-Threatening, Other)
  Sender: AUROBINDO
  Company Number: EU-AUROBINDO-AUR-APL-2019-011037

PATIENT
  Age: 33 Year
  Sex: Female
  Weight: 48 kg

DRUGS (18)
  1. ALPRAZOLAM [Suspect]
     Active Substance: ALPRAZOLAM
     Indication: Anxiety
     Dosage: (1) IN TOTAL, ONCE
     Route: 061
     Dates: start: 20181211, end: 20181211
  2. PRIMPERAN [Suspect]
     Active Substance: METOCLOPRAMIDE HYDROCHLORIDE
     Indication: Prophylaxis of nausea and vomiting
     Dosage: 30 MILLIGRAM, ONCE A DAY (CONCENTRATION: 10 MG/2 ML)
     Dates: start: 20181123, end: 20181212
  3. PIPERACILLIN SODIUM\TAZOBACTAM SODIUM [Suspect]
     Active Substance: PIPERACILLIN SODIUM\TAZOBACTAM SODIUM
     Indication: Febrile neutropenia
     Dosage: UNK
     Route: 065
  4. PIPERACILLIN SODIUM\TAZOBACTAM SODIUM [Suspect]
     Active Substance: PIPERACILLIN SODIUM\TAZOBACTAM SODIUM
     Indication: Sepsis
     Dosage: 3 DOSAGE FORM, ONCE A DAY (1 DOSAGE FORM, TID )
     Dates: start: 20181201, end: 20181212
  5. ACUPAN [Suspect]
     Active Substance: NEFOPAM HYDROCHLORIDE
     Indication: Stomatitis
     Dosage: 80 MILLIGRAM, ONCE A DAY (20 MILLIGRAM, QID)
     Dates: start: 20181201, end: 20181212
  6. VFEND [Suspect]
     Active Substance: VORICONAZOLE
     Indication: Antifungal prophylaxis
     Dosage: 500 MILLIGRAM, ONCE A DAY (250 MILLIGRAM, BID)
     Dates: start: 20181201, end: 20181209
  7. ZOVIRAX [Suspect]
     Active Substance: ACYCLOVIR
     Indication: Antiviral prophylaxis
     Dosage: 750 MILLIGRAM, ONCE A DAY (250 MILLIGRAM, TID)
     Dates: start: 20181201, end: 20181210
  8. CYCLOPHOSPHAMIDE [Suspect]
     Active Substance: CYCLOPHOSPHAMIDE
     Indication: Stem cell transplant
     Dosage: 2400 MILLIGRAM, ONCE A DAY
     Dates: start: 20181203, end: 20181204
  9. SUPROFEN [Suspect]
     Active Substance: SUPROFEN
     Indication: Stomatitis
     Dosage: 300 MILLIGRAM, ONCE A DAY (100 MILLIGRAM, TID)
     Dates: start: 20181204, end: 20181212
  10. CELLCEPT [Suspect]
     Active Substance: MYCOPHENOLATE MOFETIL
     Indication: Graft versus host disease
     Dosage: 2250 MILLIGRAM, ONCE A DAY (750 MILLIGRAM, TID)
     Route: 061
     Dates: start: 20181205, end: 20181212
  11. CYCLOSPORINE [Suspect]
     Active Substance: CYCLOSPORINE
     Indication: Graft versus host disease
     Dosage: 150 MILLIGRAM, ONCE A DAY ( CONCENTRATION: 50 MG/ML)
     Dates: start: 20181205, end: 20181209
  12. CYCLOSPORINE [Suspect]
     Active Substance: CYCLOSPORINE
     Indication: Prophylaxis against graft versus host disease
  13. AMIKACIN [Suspect]
     Active Substance: AMIKACIN
     Indication: Pseudomonas infection
     Dosage: 1200 MILLIGRAM, ONCE A DAY
     Dates: start: 20181206, end: 20181209
  14. LETERMOVIR [Suspect]
     Active Substance: LETERMOVIR
     Indication: Antiviral prophylaxis
     Dosage: 240 MILLIGRAM, ONCE A DAY
     Route: 061
     Dates: start: 20181206, end: 20181213
  15. CANCIDAS [Suspect]
     Active Substance: CASPOFUNGIN ACETATE
     Indication: Antifungal prophylaxis
     Dosage: 50 MILLIGRAM, ONCE A DAY
     Dates: start: 20181210, end: 20181213
  16. TRAMADOL HYDROCHLORIDE [Suspect]
     Active Substance: TRAMADOL HYDROCHLORIDE
     Indication: Stomatitis
     Dosage: 300 MILLIGRAM, ONCE A DAY
     Dates: start: 20181204, end: 20181212
  17. ALPRAZOLAM [Suspect]
     Active Substance: ALPRAZOLAM
     Indication: Anxiety
     Dosage: 0.25 MILLIGRAM ( 1 TOTAL)
     Route: 061
     Dates: start: 20181211, end: 20181211
  18. CYCLOSPORINE [Suspect]
     Active Substance: CYCLOSPORINE
     Indication: Prophylaxis against graft versus host disease
     Dosage: 150 MILLIGRAM, ONCE A DAY
     Dates: start: 20181205, end: 20181209

REACTIONS (12)
  - Coma [Fatal]
  - Encephalopathy [Fatal]
  - Cytokine release syndrome [Fatal]
  - Cardiac failure [Not Recovered/Not Resolved]
  - Enterocolitis [Not Recovered/Not Resolved]
  - Acute kidney injury [Not Recovered/Not Resolved]
  - Status epilepticus [Unknown]
  - Alanine aminotransferase abnormal [Unknown]
  - Aspartate aminotransferase abnormal [Unknown]
  - Blood alkaline phosphatase abnormal [Unknown]
  - Blood bilirubin abnormal [Unknown]
  - Blood potassium abnormal [Unknown]

NARRATIVE: CASE EVENT DATE: 20181207
